FAERS Safety Report 9179278 (Version 2)
Quarter: 2013Q2

REPORT INFORMATION
  Report Type: Spontaneous
  Country: US (occurrence: US)
  Receive Date: 20130321
  Receipt Date: 20130404
  Transmission Date: 20140414
  Serious: Yes (Other)
  Sender: FDA-Public Use
  Company Number: US-ALEXION-A201300448

PATIENT
  Sex: Female
  Weight: 51.7 kg

DRUGS (5)
  1. SOLIRIS 300MG [Suspect]
     Indication: PAROXYSMAL NOCTURNAL HAEMOGLOBINURIA
     Dosage: 600 MG, QW
     Route: 042
     Dates: start: 20120604, end: 20120625
  2. SOLIRIS 300MG [Suspect]
     Dosage: 900 MG, Q2W
     Route: 042
     Dates: start: 20120716
  3. COUMADIN [Concomitant]
     Indication: HYPERCOAGULATION
     Dosage: UNK
  4. MULTIVITAMIN [Concomitant]
     Dosage: UNK
  5. PLATELETS [Concomitant]

REACTIONS (1)
  - Cataract [Recovered/Resolved]
